FAERS Safety Report 8793894 (Version 1)
Quarter: 2012Q4

REPORT INFORMATION
  Report Type: 
  Country: US (occurrence: US)
  Receive Date: 20120918
  Receipt Date: 20120918
  Transmission Date: 20130627
  Serious: No
  Sender: FDA-Public Use
  Company Number: US-009507513-1208USA007887

PATIENT

DRUGS (10)
  1. VICTRELIS [Suspect]
     Dosage: 4 DF, tid
     Route: 048
  2. REBETOL [Suspect]
     Dosage: 200 mg, UNK
  3. PEGASYS [Concomitant]
  4. EFFIENT [Concomitant]
     Dosage: 10 mg, UNK
  5. CITALOPRAM [Concomitant]
     Dosage: 20 mg, UNK
  6. OMEPRAZOLE [Concomitant]
  7. LOVAZA [Concomitant]
  8. PRILOSEC [Concomitant]
     Dosage: 10 mg, UNK
  9. COLACE [Concomitant]
     Dosage: 50 mg, UNK
  10. MULTIVIT [Concomitant]

REACTIONS (4)
  - Malaise [Unknown]
  - Headache [Unknown]
  - Dizziness [Unknown]
  - Fatigue [Unknown]
